FAERS Safety Report 6518831-0 (Version None)
Quarter: 2009Q4

REPORT INFORMATION
  Report Type: 
  Country: None (occurrence: None)
  Receive Date: 20091228
  Receipt Date: 20091217
  Transmission Date: 20100525
  Serious: Yes (Other)
  Sender: FDA-Public Use
  Company Number: JP-ASTRAZENECA-2009SE33439

PATIENT
  Sex: Female

DRUGS (5)
  1. SEROQUEL [Suspect]
     Dosage: MAXIMUM OF 20 DAY PRESCRIPTION
     Route: 048
  2. AMOBAN [Suspect]
     Dosage: MAXIMUM OF 20 DAY PRESCRIPTION
     Route: 048
  3. FLUNITRAZEPAM [Suspect]
     Dosage: MAXIMUM OF 20 DAY PRESCRIPTION
     Route: 048
  4. RIVOTRIL [Suspect]
     Dosage: MAXIMUM OF 20 DAY PRESCRIPTION
     Route: 048
  5. HALCION [Suspect]
     Dosage: MAXIMUM OF 20 DAY PRESCRIPTION
     Route: 048

REACTIONS (1)
  - OVERDOSE [None]
